FAERS Safety Report 6417905-2 (Version None)
Quarter: 2009Q4

REPORT INFORMATION
  Report Type: 
  Country: None (occurrence: None)
  Receive Date: 20091028
  Receipt Date: 20091020
  Transmission Date: 20100525
  Serious: Yes (Hospitalization)
  Sender: FDA-Public Use
  Company Number: B0559236A

PATIENT
  Sex: Female

DRUGS (5)
  1. RELENZA [Suspect]
     Indication: INFLUENZA
     Dosage: 5MG PER DAY
     Route: 055
     Dates: start: 20090205, end: 20090206
  2. IBUPROFEN [Suspect]
     Indication: ANTIPYRESIS
     Dosage: 100MG PER DAY
     Route: 048
     Dates: start: 20090205, end: 20090206
  3. HUSTAZOL [Concomitant]
     Indication: COUGH
     Dosage: 10MG PER DAY
     Route: 048
     Dates: start: 20090205
  4. LYSOZYME HYDROCHLORIDE [Concomitant]
     Indication: PRODUCTIVE COUGH
     Dosage: 90MG PER DAY
     Route: 048
     Dates: start: 20090205
  5. HISPORAN [Concomitant]
     Indication: HYPERSENSITIVITY
     Dosage: 3MG PER DAY
     Route: 048
     Dates: start: 20090205

REACTIONS (2)
  - ABNORMAL BEHAVIOUR [None]
  - ALTERED STATE OF CONSCIOUSNESS [None]
